FAERS Safety Report 5159277-X (Version None)
Quarter: 2006Q4

REPORT INFORMATION
  Report Type: 
  Country: None (occurrence: None)
  Receive Date: 20061120
  Receipt Date: 20061102
  Transmission Date: 20070319
  Serious: Yes (Other)
  Sender: FDA-Public Use
  Company Number: 2006BH014412

PATIENT
  Age: 42 Year
  Sex: Female

DRUGS (2)
  1. IMMUNE GLOBULIN INTRAVENOUS (HUMAN) [Suspect]
     Indication: HYPOGAMMAGLOBULINAEMIA
     Dosage: 17.5 GM; EVERY 3 WK; IV
     Route: 042
     Dates: start: 20061023, end: 20061023
  2. DOXIMED [Concomitant]

REACTIONS (12)
  - BLOOD PRESSURE IMMEASURABLE [None]
  - C-REACTIVE PROTEIN INCREASED [None]
  - CHILLS [None]
  - DIZZINESS [None]
  - DYSPNOEA [None]
  - HYPERHIDROSIS [None]
  - NAUSEA [None]
  - PALLOR [None]
  - PHARYNGOLARYNGEAL PAIN [None]
  - PYREXIA [None]
  - SINUSITIS [None]
  - TACHYCARDIA [None]
